FAERS Safety Report 4825276-8 (Version None)
Quarter: 2005Q4

REPORT INFORMATION
  Report Type: 
  Country: None (occurrence: None)
  Receive Date: 20051109
  Receipt Date: 20051025
  Transmission Date: 20060501
  Serious: Yes (Death)
  Sender: FDA-Public Use
  Company Number: GBR-2005-0001943

PATIENT
  Sex: Male

DRUGS (8)
  1. THEOPHYLLINE [Suspect]
  2. THEOPHYLLINE [Suspect]
  3. COMBIVENT [Suspect]
  4. ETIDRONATE DISODIUM [Suspect]
  5. FUROSEMIDE [Suspect]
  6. PREDNISOLONE [Suspect]
  7. SERETIDE (FLUTICASONE PROPIONATE, SALMETEROL) [Suspect]
     Dosage: 500 MCG, DAILY, INHALATION
     Route: 055
  8. VENTOLIN [Suspect]
     Dosage: INHALATION
     Route: 055

REACTIONS (1)
  - CHRONIC OBSTRUCTIVE PULMONARY DISEASE [None]
